FAERS Safety Report 5315660-0 (Version None)
Quarter: 2007Q2

REPORT INFORMATION
  Report Type: 
  Country: None (occurrence: None)
  Receive Date: 20070503
  Receipt Date: 20070502
  Transmission Date: 20071010
  Serious: Yes (Hospitalization)
  Sender: FDA-Public Use
  Company Number: CA-BRISTOL-MYERS SQUIBB COMPANY-13767033

PATIENT
  Age: 63 Year
  Sex: Male

DRUGS (3)
  1. ORENCIA [Suspect]
     Indication: RHEUMATOID ARTHRITIS
     Route: 042
     Dates: start: 20061206
  2. DILAUDID [Suspect]
  3. EMPRACET [Suspect]

REACTIONS (1)
  - HEART RATE DECREASED [None]
